FAERS Safety Report 9176990 (Version 2)
Quarter: 2013Q4

REPORT INFORMATION
  Report Type: Spontaneous
  Country: US (occurrence: US)
  Receive Date: 20120531
  Receipt Date: 20131127
  Transmission Date: 20140711
  Serious: Yes (Hospitalization, Other)
  Sender: FDA-Public Use
  Company Number: US201110004505

PATIENT
  Age: 54 Year
  Sex: Male
  Weight: 85.71 kg

DRUGS (7)
  1. BYETTA PEN DISPOSABLE [Suspect]
     Route: 058
     Dates: start: 2007, end: 20081224
  2. AMARYL [Concomitant]
  3. GLIPIZIDE [Concomitant]
  4. LISINOPRIL [Concomitant]
  5. SIMVASTATIN [Concomitant]
     Route: 048
  6. ACTOS [Concomitant]
  7. TRAZODONE [Concomitant]
     Indication: ANXIETY

REACTIONS (1)
  - Pancreatitis acute [Recovering/Resolving]
